FAERS Safety Report 7978181-2 (Version None)
Quarter: 2011Q4

REPORT INFORMATION
  Report Type: 
  Country: None (occurrence: None)
  Receive Date: 20111207
  Receipt Date: 20111123
  Transmission Date: 20120403
  Serious: Yes (Death, Life-Threatening, Hospitalization, Disabling, Other)
  Sender: FDA-Public Use
  Company Number: 2009AL004000

PATIENT
  Age: 71 Year
  Sex: Male
  Weight: 104.3273 kg

DRUGS (74)
  1. ACTOS [Concomitant]
  2. AMITRIPTYLINE HCL [Concomitant]
  3. AMPICILLIN [Concomitant]
  4. COUMADIN [Concomitant]
  5. FLU SHOT [Concomitant]
  6. VITAMIN C [Concomitant]
  7. AMARYL [Concomitant]
  8. COLACE [Concomitant]
  9. COREG [Concomitant]
  10. MUCINEX [Concomitant]
  11. ATROPINE [Concomitant]
  12. DUONEB [Concomitant]
  13. KAY CIEL DURA-TABS [Concomitant]
  14. MAGNESIUM CITRATE [Concomitant]
  15. QUINIDEX [Concomitant]
  16. ROCEPHIN [Concomitant]
  17. LORAZEPAM [Concomitant]
  18. ALDACTONE [Concomitant]
  19. ADVAIR DISKUS 100/50 [Concomitant]
  20. THYROID TAB [Concomitant]
  21. QUERCETIN PLUS VITAMIN C [Concomitant]
  22. FOLIC ACID [Concomitant]
  23. BISOPROLOL FUMARATE [Concomitant]
  24. DOXYCYCLINE [Concomitant]
  25. ENEMA [Concomitant]
  26. LEVAQUIN [Concomitant]
  27. METOPROLOL TARTRATE [Concomitant]
  28. PROCAINAMIDE [Concomitant]
  29. ACETAMINOPHEN [Concomitant]
  30. ASPIRIN [Concomitant]
  31. LITHIUM [Concomitant]
  32. SPIRIVA [Concomitant]
  33. ALBUTEROL [Concomitant]
  34. VITAMIN E [Concomitant]
  35. INSULIN [Concomitant]
  36. KAYEXALATE [Concomitant]
  37. NYSTATIN [Concomitant]
  38. PROCARDIA XL [Concomitant]
  39. CELEXA [Concomitant]
  40. PROTONIX [Concomitant]
  41. METHOTREXATE [Concomitant]
  42. POTASSIUM CHLORIDE [Concomitant]
  43. ARICEPT [Concomitant]
  44. AZITHROMYCIN [Concomitant]
  45. DOPAMINE HCL [Concomitant]
  46. HYDROXYZINE [Concomitant]
  47. MELOXICAM [Concomitant]
  48. XANAX [Concomitant]
  49. DIGOXIN [Suspect]
     Indication: ATRIAL FIBRILLATION
     Dosage: 0.25 MG;QD;PO
     Route: 048
     Dates: start: 20030617, end: 20080630
  50. CORDARONE [Concomitant]
  51. LASIX [Concomitant]
  52. SYNTHROID [Concomitant]
  53. SENOKOT [Concomitant]
  54. LOTENSIN [Concomitant]
  55. BICARBONATE [Concomitant]
  56. DIGIBIND [Concomitant]
  57. PLAVIX [Concomitant]
  58. AMITIZA [Concomitant]
  59. EPINEPHRINE [Concomitant]
  60. LIDOCAINE [Concomitant]
  61. PROMETHAZINE [Concomitant]
  62. HUMALOG [Concomitant]
  63. HEPARIN [Concomitant]
  64. CRESTOR [Concomitant]
  65. GERITOL [Concomitant]
  66. FLONASE [Concomitant]
  67. WELLBUTRIN [Concomitant]
  68. B 12 PLUS [Concomitant]
  69. PROVENTIL-HFA [Concomitant]
  70. ATROVENT [Concomitant]
  71. LUNESTA [Concomitant]
  72. NAPROSYN [Concomitant]
  73. PIOGLITAZONE [Concomitant]
  74. XENADERM [Concomitant]

REACTIONS (172)
  - ECONOMIC PROBLEM [None]
  - TOXICITY TO VARIOUS AGENTS [None]
  - ISCHAEMIC CARDIOMYOPATHY [None]
  - ELECTROCARDIOGRAM QRS COMPLEX PROLONGED [None]
  - RESPIRATORY FATIGUE [None]
  - POISONING [None]
  - BIPOLAR DISORDER [None]
  - HYPOTHYROIDISM [None]
  - HYDROCEPHALUS [None]
  - ASTHMA [None]
  - INTERVERTEBRAL DISC DEGENERATION [None]
  - CONFUSIONAL STATE [None]
  - RENAL FAILURE CHRONIC [None]
  - CAROTID ARTERY DISEASE [None]
  - HAEMORRHAGE [None]
  - DYSPHAGIA [None]
  - ACTIVITIES OF DAILY LIVING IMPAIRED [None]
  - EMPHYSEMA [None]
  - UNEVALUABLE EVENT [None]
  - PNEUMONIA [None]
  - ANXIETY [None]
  - PULMONARY OEDEMA [None]
  - ANGER [None]
  - WHEEZING [None]
  - SPUTUM ABNORMAL [None]
  - ARTERIOSCLEROSIS [None]
  - ORTHOPNOEA [None]
  - VISUAL IMPAIRMENT [None]
  - THERAPY REGIMEN CHANGED [None]
  - DIABETIC NEUROPATHY [None]
  - ANKLE FRACTURE [None]
  - VERTIGO [None]
  - DYSKINESIA [None]
  - DISTRACTIBILITY [None]
  - VOMITING [None]
  - HEART RATE DECREASED [None]
  - DEVICE FAILURE [None]
  - MITRAL VALVE CALCIFICATION [None]
  - BLISTER [None]
  - SURGERY [None]
  - CEREBROVASCULAR ACCIDENT [None]
  - CARDIO-RESPIRATORY ARREST [None]
  - CORONARY ARTERY DISEASE [None]
  - BLOOD PRESSURE DECREASED [None]
  - LUNG INFILTRATION [None]
  - PULMONARY CONGESTION [None]
  - NEUROLOGICAL SYMPTOM [None]
  - DYSPNOEA [None]
  - PROLONGED EXPIRATION [None]
  - CEREBRAL INFARCTION [None]
  - DEVICE MALFUNCTION [None]
  - SYNCOPE [None]
  - HAEMOPTYSIS [None]
  - DECREASED APPETITE [None]
  - RHEUMATOID ARTHRITIS [None]
  - HYPOTONIA [None]
  - LACERATION [None]
  - PELVIC PAIN [None]
  - RESPIRATORY TRACT CONGESTION [None]
  - DEPRESSED LEVEL OF CONSCIOUSNESS [None]
  - CARDIOMEGALY [None]
  - TRICUSPID VALVE INCOMPETENCE [None]
  - VASCULAR DEMENTIA [None]
  - BLOOD POTASSIUM INCREASED [None]
  - CARDIAC DISORDER [None]
  - LEFT VENTRICULAR DYSFUNCTION [None]
  - CARDIOMYOPATHY [None]
  - RHINITIS [None]
  - VENTRICULAR TACHYCARDIA [None]
  - HYPERTENSION [None]
  - ASTHENIA [None]
  - OBESITY [None]
  - INADEQUATE DIET [None]
  - BALANCE DISORDER [None]
  - SUDDEN DEATH [None]
  - IMPLANTABLE DEFIBRILLATOR REPLACEMENT [None]
  - ANGINA UNSTABLE [None]
  - RENAL FAILURE [None]
  - CEREBRAL ISCHAEMIA [None]
  - MALAISE [None]
  - PAIN [None]
  - BLOOD GLUCOSE DECREASED [None]
  - CONSTIPATION [None]
  - PALLOR [None]
  - UNRESPONSIVE TO STIMULI [None]
  - CARDIAC ARREST [None]
  - PULSE ABSENT [None]
  - MITRAL VALVE INCOMPETENCE [None]
  - FIBULA FRACTURE [None]
  - ACIDOSIS [None]
  - DEPRESSION [None]
  - MENTAL IMPAIRMENT [None]
  - EMOTIONAL DISORDER [None]
  - BUNDLE BRANCH BLOCK RIGHT [None]
  - OEDEMA PERIPHERAL [None]
  - ATRIAL FIBRILLATION [None]
  - DYSPNOEA EXERTIONAL [None]
  - SPUTUM PURULENT [None]
  - CARDIOVASCULAR DISORDER [None]
  - GAIT DISTURBANCE [None]
  - NERVOUS SYSTEM DISORDER [None]
  - VITAMIN B12 DEFICIENCY [None]
  - TREMOR [None]
  - CANDIDIASIS [None]
  - HYPERLIPIDAEMIA [None]
  - HEMIPARESIS [None]
  - ARRHYTHMIA [None]
  - NASAL CONGESTION [None]
  - HYPOTENSION [None]
  - DEHYDRATION [None]
  - PERIPHERAL COLDNESS [None]
  - PULMONARY HYPERTENSION [None]
  - CARDIOACTIVE DRUG LEVEL BELOW THERAPEUTIC [None]
  - MULTIPLE INJURIES [None]
  - PERIPHERAL VASCULAR DISORDER [None]
  - SINUS TACHYCARDIA [None]
  - CEREBRAL ARTERY OCCLUSION [None]
  - WEIGHT DECREASED [None]
  - OBSTRUCTIVE AIRWAYS DISORDER [None]
  - BREATH SOUNDS ABNORMAL [None]
  - HEART SOUNDS ABNORMAL [None]
  - NEUROPATHY PERIPHERAL [None]
  - OSTEOARTHRITIS [None]
  - ARTHRALGIA [None]
  - MOTION SICKNESS [None]
  - DEMENTIA [None]
  - ACUTE MYOCARDIAL INFARCTION [None]
  - TACHYCARDIA [None]
  - PYREXIA [None]
  - HYPERHIDROSIS [None]
  - HYPERKALAEMIA [None]
  - HYPOGLYCAEMIA [None]
  - HEMIANOPIA HOMONYMOUS [None]
  - APRAXIA [None]
  - MOVEMENT DISORDER [None]
  - SCAR [None]
  - PULMONARY GRANULOMA [None]
  - AORTIC ANEURYSM [None]
  - FEAR [None]
  - CARDIOACTIVE DRUG LEVEL ABOVE THERAPEUTIC [None]
  - FEELING OF DESPAIR [None]
  - CHRONIC OBSTRUCTIVE PULMONARY DISEASE [None]
  - ABNORMAL BEHAVIOUR [None]
  - FAMILY STRESS [None]
  - OEDEMA [None]
  - DIZZINESS [None]
  - MYELOPATHY [None]
  - FALL [None]
  - BRONCHITIS [None]
  - LEUKOCYTOSIS [None]
  - NAUSEA [None]
  - RENAL FAILURE ACUTE [None]
  - CORONARY ARTERY EMBOLISM [None]
  - RESPIRATORY FAILURE [None]
  - LUNG NEOPLASM [None]
  - TUBERCULIN TEST POSITIVE [None]
  - DIABETES MELLITUS [None]
  - ATRIOVENTRICULAR BLOCK FIRST DEGREE [None]
  - CARDIAC FAILURE CONGESTIVE [None]
  - BRADYCARDIA [None]
  - TYPE 2 DIABETES MELLITUS [None]
  - FLUID OVERLOAD [None]
  - TREATMENT NONCOMPLIANCE [None]
  - MUSCULAR WEAKNESS [None]
  - UPPER RESPIRATORY TRACT INFECTION [None]
  - HALLUCINATION, VISUAL [None]
  - INSOMNIA [None]
  - ARTHRITIS [None]
  - DYSPNOEA PAROXYSMAL NOCTURNAL [None]
  - CAROTID ARTERIOSCLEROSIS [None]
  - RESPIRATORY ARREST [None]
  - HYPERCAPNIA [None]
